FAERS Safety Report 5452936-0 (Version None)
Quarter: 2007Q3

REPORT INFORMATION
  Report Type: 
  Country: None (occurrence: None)
  Receive Date: 20070914
  Receipt Date: 20070904
  Transmission Date: 20080115
  Serious: Yes (Hospitalization, Other)
  Sender: FDA-Public Use
  Company Number: US-PURDUE-USA_2007_0027720

PATIENT
  Sex: Female

DRUGS (1)
  1. OXYCONTIN [Suspect]
     Indication: PAIN
     Dosage: 10 MG, BID
     Dates: start: 19920109

REACTIONS (3)
  - KNEE ARTHROPLASTY [None]
  - NORMAL PRESSURE HYDROCEPHALUS [None]
  - SHOULDER ARTHROPLASTY [None]
